FAERS Safety Report 7915610-4 (Version None)
Quarter: 2011Q4

REPORT INFORMATION
  Report Type: 
  Country: None (occurrence: None)
  Receive Date: 20111115
  Receipt Date: 20110727
  Transmission Date: 20120403
  Serious: No
  Sender: FDA-Public Use
  Company Number: US-BRISTOL-MYERS SQUIBB COMPANY-15852767

PATIENT
  Age: 69 Year
  Sex: Male

DRUGS (7)
  1. POTASSIUM [Concomitant]
  2. TOPROL-XL [Concomitant]
  3. ASPIRIN [Concomitant]
  4. LISINOPRIL [Concomitant]
  5. YERVOY [Suspect]
     Indication: METASTATIC MALIGNANT MELANOMA
     Route: 042
     Dates: start: 20110622
  6. LIPITOR [Concomitant]
  7. LASIX [Concomitant]

REACTIONS (1)
  - VITREOUS FLOATERS [None]
